FAERS Safety Report 4960727-X (Version None)
Quarter: 2006Q2

REPORT INFORMATION
  Report Type: 
  Country: None (occurrence: None)
  Receive Date: 20060403
  Receipt Date: 20060220
  Transmission Date: 20061013
  Serious: Yes (Hospitalization)
  Sender: FDA-Public Use
  Company Number: 2006CG00409

PATIENT
  Age: 29786 Day
  Sex: Male
  Weight: 78.3 kg

DRUGS (7)
  1. NEXIUM [Suspect]
     Indication: GASTRITIS
     Route: 048
     Dates: end: 20060207
  2. REMINYL [Suspect]
     Indication: DEMENTIA ALZHEIMER'S TYPE
     Route: 048
     Dates: end: 20060207
  3. BETA BLOCKING AGENT [Concomitant]
     Indication: CORONARY ARTERY INSUFFICIENCY
  4. PREVISCAN [Concomitant]
     Indication: CORONARY ARTERY INSUFFICIENCY
  5. ELISOR [Concomitant]
     Indication: HYPERCHOLESTEROLAEMIA
  6. LEVOTHYROX [Concomitant]
     Indication: HYPOTHYROIDISM
  7. CORDARONE [Concomitant]

REACTIONS (3)
  - AGITATION [None]
  - CONFUSIONAL STATE [None]
  - HEPATITIS [None]
